FAERS Safety Report 14497327 (Version 2)
Quarter: 2018Q2

REPORT INFORMATION
  Report Type: Spontaneous
  Country: JP (occurrence: JP)
  Receive Date: 20180207
  Receipt Date: 20180502
  Transmission Date: 20180711
  Serious: Yes (Hospitalization, Other)
  Sender: FDA-Public Use
  Company Number: JP-GLAXOSMITHKLINE-JP2018JPN019049

PATIENT
  Age: 57 Year
  Sex: Male

DRUGS (3)
  1. MEILAX [Suspect]
     Active Substance: ETHYL LOFLAZEPATE
     Indication: SCHIZOPHRENIA
     Dosage: 1 MG, 1D
     Route: 048
     Dates: start: 20110725, end: 20110913
  2. LAMICTAL [Suspect]
     Active Substance: LAMOTRIGINE
     Indication: SCHIZOPHRENIA
     Dosage: 25 MG, 1D
     Route: 048
     Dates: start: 20110725
  3. LAMICTAL [Suspect]
     Active Substance: LAMOTRIGINE
     Dosage: 200 MG, 1D
     Route: 048
     Dates: end: 20110913

REACTIONS (7)
  - Drug eruption [Unknown]
  - Medication error [Unknown]
  - Aphthous ulcer [Unknown]
  - Erythema [Unknown]
  - Drug reaction with eosinophilia and systemic symptoms [Recovering/Resolving]
  - Purpura [Unknown]
  - Pyrexia [Unknown]

NARRATIVE: CASE EVENT DATE: 201108
